FAERS Safety Report 4635689-5 (Version None)
Quarter: 2005Q2

REPORT INFORMATION
  Report Type: 
  Country: None (occurrence: None)
  Receive Date: 20050414
  Receipt Date: 20050331
  Transmission Date: 20051028
  Serious: Yes (Other)
  Sender: FDA-Public Use
  Company Number: 26364

PATIENT
  Age: 58 Year
  Sex: Female

DRUGS (4)
  1. ALDARA [Suspect]
     Indication: ACTINIC KERATOSIS
     Dosage: UNSPEC. (3 IN 1 WEEKS); TOPICAL
     Route: 061
     Dates: start: 20050131, end: 20050220
  2. ALLEGRA [Concomitant]
  3. SINGULAIR [Concomitant]
  4. ADVAIR DISKUS 100/50 [Concomitant]

REACTIONS (13)
  - BURNING SENSATION [None]
  - CHEST PAIN [None]
  - DIARRHOEA [None]
  - DYSPNOEA [None]
  - ERYTHEMA [None]
  - FEELING OF BODY TEMPERATURE CHANGE [None]
  - HEADACHE [None]
  - INFLAMMATION [None]
  - MILIA [None]
  - PHOTOSENSITIVITY REACTION [None]
  - PURULENT DISCHARGE [None]
  - TACHYCARDIA [None]
  - TELANGIECTASIA [None]
